FAERS Safety Report 11050269 (Version 2)
Quarter: 2015Q2

REPORT INFORMATION
  Report Type: Report from Study
  Country: US (occurrence: US)
  Receive Date: 20150421
  Receipt Date: 20150528
  Transmission Date: 20150821
  Serious: No
  Sender: FDA-Public Use
  Company Number: US-LEO PHARMA-233873

PATIENT
  Age: 61 Year
  Sex: Female

DRUGS (1)
  1. PICATO [Suspect]
     Active Substance: INGENOL MEBUTATE
     Indication: PRECANCEROUS SKIN LESION
     Route: 061
     Dates: start: 20150414, end: 20150414

REACTIONS (7)
  - Eyelid ptosis [Recovered/Resolved]
  - Application site exfoliation [Recovered/Resolved]
  - Incorrect drug administration duration [Unknown]
  - Eye swelling [Recovered/Resolved]
  - Application site vesicles [Recovered/Resolved]
  - Application site swelling [Recovered/Resolved]
  - Application site pain [Recovered/Resolved]

NARRATIVE: CASE EVENT DATE: 20150415
